FAERS Safety Report 18798636 (Version 2)
Quarter: 2021Q1

REPORT INFORMATION
  Report Type: Spontaneous
  Country: US (occurrence: US)
  Receive Date: 20210128
  Receipt Date: 20210222
  Transmission Date: 20210419
  Serious: Yes (Other)
  Sender: FDA-Public Use
  Company Number: US-ADVANZ PHARMA-202101000331

PATIENT

DRUGS (4)
  1. IBUPROFEN. [Concomitant]
     Active Substance: IBUPROFEN
     Indication: DERMOID CYST
     Dosage: 10 MG/KG, BID
     Route: 048
  2. FLUOROQUINOLONE [Concomitant]
     Active Substance: UNSPECIFIED INGREDIENT
     Indication: DERMOID CYST
     Dosage: UNK, BID
     Route: 061
  3. PREDNISOLONE. [Suspect]
     Active Substance: PREDNISOLONE
     Indication: EPISCLERITIS
     Dosage: UNK, QID IN THE LEFT EYE
     Route: 061
  4. KERATIN [Concomitant]
     Active Substance: KERATIN
     Indication: DERMOID CYST
     Dosage: UNK

REACTIONS (3)
  - Condition aggravated [Recovering/Resolving]
  - Dermoid cyst [Recovering/Resolving]
  - Therapeutic product effect incomplete [Unknown]
